FAERS Safety Report 10201339 (Version 1)
Quarter: 2014Q2

REPORT INFORMATION
  Report Type: Report from Study
  Country: US (occurrence: US)
  Receive Date: 20140528
  Receipt Date: 20140528
  Transmission Date: 20141212
  Serious: Yes (Other)
  Sender: FDA-Public Use
  Company Number: US-BAYER-2014-077673

PATIENT
  Sex: Female

DRUGS (1)
  1. MIRENA [Suspect]
     Indication: CONTRACEPTION

REACTIONS (6)
  - Genital haemorrhage [None]
  - Abdominal pain lower [None]
  - Vulvovaginal pain [None]
  - Device expulsion [None]
  - Device issue [None]
  - Cervix disorder [None]
